FAERS Safety Report 6717840-6 (Version None)
Quarter: 2010Q2

REPORT INFORMATION
  Report Type: 
  Country: None (occurrence: None)
  Receive Date: 20100510
  Receipt Date: 20100430
  Transmission Date: 20101027
  Serious: Yes (Hospitalization)
  Sender: FDA-Public Use
  Company Number: FR-MERCK-1004FRA00151

PATIENT
  Age: 38 Year
  Sex: Female
  Weight: 68 kg

DRUGS (8)
  1. CANCIDAS [Suspect]
     Indication: INFECTION
     Route: 042
     Dates: start: 20100110
  2. CANCIDAS [Suspect]
     Route: 042
     Dates: start: 20100109, end: 20100109
  3. ISONIAZID [Suspect]
     Indication: TUBERCULOSIS GASTROINTESTINAL
     Route: 042
     Dates: start: 20100111, end: 20100111
  4. RIFAMPIN [Suspect]
     Indication: TUBERCULOSIS GASTROINTESTINAL
     Route: 042
     Dates: start: 20100111, end: 20100111
  5. ETHAMBUTOL HYDROCHLORIDE [Concomitant]
     Indication: TUBERCULOSIS GASTROINTESTINAL
     Route: 042
     Dates: start: 20100111, end: 20100111
  6. CILASTATIN SODIUM AND IMIPENEM [Concomitant]
     Route: 042
     Dates: start: 20100109
  7. VANCOMYCIN [Concomitant]
     Route: 042
     Dates: start: 20100109
  8. ESOMEPRAZOLE MAGNESIUM [Concomitant]
     Route: 065
     Dates: start: 20100109

REACTIONS (2)
  - CYTOLYTIC HEPATITIS [None]
  - HEPATITIS CHOLESTATIC [None]
